FAERS Safety Report 12724529 (Version 3)
Quarter: 2016Q4

REPORT INFORMATION
  Report Type: Spontaneous
  Country: DK (occurrence: DK)
  Receive Date: 20160908
  Receipt Date: 20161110
  Transmission Date: 20170207
  Serious: Yes (Disabling, Other)
  Sender: FDA-Public Use
  Company Number: DK-PFIZER INC-2016414251

PATIENT
  Age: 51 Year
  Sex: Male

DRUGS (4)
  1. ADRIAMYCIN [Suspect]
     Active Substance: DOXORUBICIN HYDROCHLORIDE
     Indication: HODGKIN^S DISEASE NODULAR SCLEROSIS STAGE II
     Dosage: SIX SERIES OF THIS TREATMENT (ONE SERIES CONSISTS OF TWO TREATMENTS) (2 IN 1 CYCLICAL).
     Route: 065
     Dates: start: 20120727, end: 20130131
  2. BLEOMYCIN [Suspect]
     Active Substance: BLEOMYCIN SULFATE
     Indication: HODGKIN^S DISEASE NODULAR SCLEROSIS STAGE II
     Dosage: SIX SERIES OF THIS TREATMENT (ONE SERIES CONSISTS OF TWO TREATMENTS) (2 IN 1 CYCLICAL)
     Route: 065
     Dates: start: 20120727, end: 20130131
  3. VINBLASTINE SULFATE. [Suspect]
     Active Substance: VINBLASTINE SULFATE
     Indication: HODGKIN^S DISEASE NODULAR SCLEROSIS STAGE II
     Dosage: SIX SERIES OF THIS TREATMENT (ONE SERIES CONSISTS OF TWO TREATMENTS) (2 IN 1 CYCLICAL).
     Route: 065
     Dates: start: 20120727, end: 20130131
  4. DACARBAZINE. [Suspect]
     Active Substance: DACARBAZINE
     Indication: HODGKIN^S DISEASE NODULAR SCLEROSIS STAGE II
     Dosage: SIX SERIES OF THIS TREATMENT (ONE SERIES CONSISTS OF TWO TREATMENTS) (2 IN 1 CYCLICAL)
     Route: 065
     Dates: start: 20120727, end: 20130131

REACTIONS (5)
  - Pulmonary fibrosis [Not Recovered/Not Resolved]
  - Acute myocardial infarction [Unknown]
  - General physical health deterioration [Unknown]
  - Ejection fraction decreased [Unknown]
  - Osteopenia [Unknown]

NARRATIVE: CASE EVENT DATE: 201301
